FAERS Safety Report 7353951-2 (Version None)
Quarter: 2011Q1

REPORT INFORMATION
  Report Type: 
  Country: None (occurrence: None)
  Receive Date: 20110315
  Receipt Date: 20110314
  Transmission Date: 20110831
  Serious: Yes (Hospitalization)
  Sender: FDA-Public Use
  Company Number: IT-ABBOTT-11P-083-0711260-00

PATIENT
  Sex: Female

DRUGS (2)
  1. DEPAKENE [Suspect]
  2. DEPAKENE [Suspect]
     Indication: MANIA
     Route: 048

REACTIONS (3)
  - HYPERAMMONAEMIA [None]
  - DISORIENTATION [None]
  - CONFUSIONAL STATE [None]
